FAERS Safety Report 24589229 (Version 4)
Quarter: 2025Q1

REPORT INFORMATION
  Report Type: Spontaneous
  Country: JP (occurrence: JP)
  Receive Date: 20241107
  Receipt Date: 20250122
  Transmission Date: 20250409
  Serious: Yes (Death)
  Sender: BAYER HEALTHCARE PHARMACEUTICALS INC.
  Company Number: JP-BAYER-2024A158865

PATIENT
  Age: 8 Decade
  Sex: Male

DRUGS (5)
  1. XOFIGO [Suspect]
     Active Substance: RADIUM RA-223 DICHLORIDE
     Indication: Hormone-refractory prostate cancer
     Dates: start: 20190725, end: 20190725
  2. XOFIGO [Suspect]
     Active Substance: RADIUM RA-223 DICHLORIDE
     Indication: Metastases to bone
  3. DOCETAXEL [Concomitant]
     Active Substance: DOCETAXEL
  4. DOCETAXEL [Concomitant]
     Active Substance: DOCETAXEL
  5. DOCETAXEL [Concomitant]
     Active Substance: DOCETAXEL

REACTIONS (2)
  - Disseminated intravascular coagulation [Fatal]
  - Thrombophlebitis migrans [Fatal]

NARRATIVE: CASE EVENT DATE: 20190806
